FAERS Safety Report 14992072 (Version 1)
Quarter: 2018Q2

REPORT INFORMATION
  Report Type: Spontaneous
  Country: US (occurrence: US)
  Receive Date: 20180517
  Receipt Date: 20180517
  Transmission Date: 20180711
  Serious: Yes (Hospitalization)
  Sender: FDA-Public Use
  Company Number: None

PATIENT
  Sex: Male
  Weight: 93.1 kg

DRUGS (2)
  1. CASODEX [Suspect]
     Active Substance: BICALUTAMIDE
     Dates: end: 20180207
  2. LEUPROLIDE ACETATE. [Suspect]
     Active Substance: LEUPROLIDE ACETATE
     Dates: end: 20170825

REACTIONS (7)
  - Fatigue [None]
  - Therapy change [None]
  - Pain in extremity [None]
  - Dizziness [None]
  - Dyspnoea exertional [None]
  - Hypotension [None]
  - Angina pectoris [None]

NARRATIVE: CASE EVENT DATE: 20180119
